FAERS Safety Report 9775169 (Version 1)
Quarter: 2013Q4

REPORT INFORMATION
  Report Type: Spontaneous
  Country: US (occurrence: US)
  Receive Date: 20131220
  Receipt Date: 20131220
  Transmission Date: 20140711
  Serious: No
  Sender: FDA-Public Use
  Company Number: US-GILEAD-2010-0028876

PATIENT
  Sex: Male

DRUGS (2)
  1. CIDOFOVIR [Suspect]
     Indication: ACCIDENTAL EXPOSURE TO PRODUCT
     Route: 048
     Dates: start: 20100429, end: 20100429
  2. CIDOFOVIR [Suspect]
     Route: 061
     Dates: start: 20100429, end: 20100429

REACTIONS (1)
  - Accidental exposure to product [Recovered/Resolved]
